FAERS Safety Report 6810071-0 (Version None)
Quarter: 2010Q2

REPORT INFORMATION
  Report Type: 
  Country: None (occurrence: None)
  Receive Date: 20100630
  Receipt Date: 20100621
  Transmission Date: 20101027
  Serious: Yes (Death)
  Sender: FDA-Public Use
  Company Number: US-ROCHE-707516

PATIENT
  Sex: Male
  Weight: 158.6 kg

DRUGS (20)
  1. BEVACIZUMAB [Suspect]
     Indication: NON-SMALL CELL LUNG CANCER
     Route: 065
     Dates: start: 20100427, end: 20100519
  2. PACLITAXEL [Suspect]
     Indication: NON-SMALL CELL LUNG CANCER
     Route: 042
     Dates: start: 20100427, end: 20100519
  3. CARBOPLATIN [Suspect]
     Indication: NON-SMALL CELL LUNG CANCER
     Dosage: DOSE: 6 AUC.
     Route: 042
     Dates: start: 20100427, end: 20100519
  4. COREG [Concomitant]
     Indication: HYPERTENSION
  5. VALIUM [Concomitant]
  6. PERCOCET [Concomitant]
  7. SINGULAIR [Concomitant]
     Indication: SEASONAL ALLERGY
  8. NORCO [Concomitant]
  9. K-DUR [Concomitant]
  10. CRESTOR [Concomitant]
     Indication: HYPERCHOLESTEROLAEMIA
  11. LOTENSIN [Concomitant]
     Indication: HYPERTENSION
  12. ADVAIR DISKUS 100/50 [Concomitant]
     Indication: ASTHMA
  13. NOVOLOG [Concomitant]
  14. MARINOL [Concomitant]
     Dates: start: 20100409
  15. ZANTAC [Concomitant]
  16. AMARYL [Concomitant]
  17. DECADRON [Concomitant]
     Indication: PREMEDICATION
     Dates: start: 20100427, end: 20100519
  18. PEPCID [Concomitant]
     Indication: PREMEDICATION
     Dates: start: 20100427, end: 20100519
  19. BENADRYL [Concomitant]
     Indication: PREMEDICATION
     Dates: start: 20100427, end: 20100519
  20. ALOXI [Concomitant]
     Indication: PREMEDICATION
     Dates: start: 20100427, end: 20100519

REACTIONS (2)
  - CARDIO-RESPIRATORY ARREST [None]
  - MYOCARDIAL INFARCTION [None]
